FAERS Safety Report 6050408-6 (Version None)
Quarter: 2009Q1

REPORT INFORMATION
  Report Type: 
  Country: None (occurrence: None)
  Receive Date: 20090126
  Receipt Date: 20090116
  Transmission Date: 20090719
  Serious: Yes (Hospitalization)
  Sender: FDA-Public Use
  Company Number: BR-ABBOTT-08P-020-0490937-00

PATIENT
  Sex: Female

DRUGS (4)
  1. HUMIRA [Suspect]
     Indication: RHEUMATOID ARTHRITIS
     Route: 058
     Dates: start: 20050808, end: 20081116
  2. HUMIRA [Suspect]
     Dates: start: 20081201
  3. METICORTEN [Concomitant]
     Indication: DRUG USE FOR UNKNOWN INDICATION
  4. NIFELAT [Concomitant]
     Indication: DRUG USE FOR UNKNOWN INDICATION

REACTIONS (2)
  - CATARACT OPERATION [None]
  - CHOLECYSTECTOMY [None]
